FAERS Safety Report 9086603 (Version 1)
Quarter: 2013Q1

REPORT INFORMATION
  Report Type: Spontaneous
  Country: US (occurrence: US)
  Receive Date: 20130130
  Receipt Date: 20130130
  Transmission Date: 20140127
  Serious: No
  Sender: FDA-Public Use
  Company Number: US-ABBOTT-12P-163-0985510-00

PATIENT
  Age: 48 Year
  Sex: Female

DRUGS (5)
  1. HUMIRA [Suspect]
     Indication: UVEITIS
     Route: 058
     Dates: start: 20120921
  2. COSOPT [Concomitant]
     Indication: GLAUCOMA
     Route: 047
  3. ALPHAGAN [Concomitant]
     Indication: GLAUCOMA
     Route: 047
  4. XALATAN [Concomitant]
     Indication: GLAUCOMA
     Route: 047
  5. FOLIC ACID [Concomitant]
     Indication: PRODUCT USED FOR UNKNOWN INDICATION

REACTIONS (2)
  - Off label use [Not Recovered/Not Resolved]
  - Injection site pain [Recovered/Resolved]
